FAERS Safety Report 8192684 (Version 3)
Quarter: 2013Q2

REPORT INFORMATION
  Report Type: Report from Study
  Country: DK (occurrence: DK)
  Receive Date: 20111021
  Receipt Date: 20130409
  Transmission Date: 20140414
  Serious: Yes (Death, Hospitalization)
  Sender: FDA-Public Use
  Company Number: DK-AMGEN-DNKSP2011053651

PATIENT
  Age: 79 Year
  Sex: Female

DRUGS (11)
  1. PEGFILGRASTIM [Suspect]
     Indication: DIFFUSE LARGE B-CELL LYMPHOMA
  2. RITUXIMAB [Suspect]
     Indication: DIFFUSE LARGE B-CELL LYMPHOMA
     Dosage: 600 MG, QWK
     Route: 042
     Dates: start: 20101210, end: 20101210
  3. CYCLOPHOSPHAMIDE [Suspect]
     Indication: DIFFUSE LARGE B-CELL LYMPHOMA
     Dosage: 1200 MG, QWK
     Route: 042
     Dates: start: 20101210, end: 20101210
  4. DOXORUBICIN [Suspect]
     Indication: DIFFUSE LARGE B-CELL LYMPHOMA
     Dosage: 80 MG, QWK
     Route: 042
     Dates: start: 20101210, end: 20101210
  5. VINCRISTINE [Suspect]
     Indication: DIFFUSE LARGE B-CELL LYMPHOMA
     Dosage: 2 MG, QWK
     Route: 042
     Dates: start: 20101210, end: 20101210
  6. PREDNISONE [Suspect]
     Indication: DIFFUSE LARGE B-CELL LYMPHOMA
     Dosage: 100 MG, UNK
     Route: 048
     Dates: start: 20101210, end: 20101214
  7. SULFOTRIM PED [Concomitant]
     Indication: ANTIFUNGAL PROPHYLAXIS
     Dosage: UNK
     Route: 048
     Dates: start: 20101110, end: 201012
  8. KININ RECIP [Concomitant]
     Indication: RESTLESS LEGS SYNDROME
     Dosage: 200 MG, UNK
     Route: 048
     Dates: start: 20101027, end: 201012
  9. OXYCONTIN [Concomitant]
     Indication: PAIN
     Dosage: 20 MG, UNK
     Route: 048
     Dates: start: 20100922, end: 201012
  10. FLUCONAZOLE [Concomitant]
     Indication: ORAL CANDIDIASIS
     Dosage: 200 MG, UNK
     Route: 048
     Dates: start: 20101210, end: 201012
  11. ACICLODAN [Concomitant]
     Indication: ANTIVIRAL PROPHYLAXIS
     Dosage: 1200 MG, UNK
     Route: 048
     Dates: start: 20101110, end: 20101219

REACTIONS (1)
  - Neutropenic sepsis [Fatal]
